FAERS Safety Report 6030092-8 (Version None)
Quarter: 2009Q1

REPORT INFORMATION
  Report Type: 
  Country: None (occurrence: None)
  Receive Date: 20090106
  Receipt Date: 20090106
  Transmission Date: 20090719
  Serious: Yes (Hospitalization)
  Sender: FDA-Public Use
  Company Number: None

PATIENT
  Age: 66 Year
  Sex: Female
  Weight: 61.2356 kg

DRUGS (1)
  1. CARBAMAZEPINE [Suspect]
     Indication: BIPOLAR DISORDER
     Dosage: 400 MG BID ORAL
     Route: 048
     Dates: start: 20080530, end: 20080702

REACTIONS (3)
  - BIPOLAR DISORDER [None]
  - CONDITION AGGRAVATED [None]
  - HYPONATRAEMIA [None]
